FAERS Safety Report 5563657-8 (Version None)
Quarter: 2007Q4

REPORT INFORMATION
  Report Type: 
  Country: None (occurrence: None)
  Receive Date: 20071217
  Receipt Date: 20070718
  Transmission Date: 20080405
  Serious: No
  Sender: FDA-Public Use
  Company Number: US-ASTRAZENECA-2007UW17060

PATIENT
  Age: 70 Year
  Sex: Female
  Weight: 75.7 kg

DRUGS (2)
  1. CRESTOR [Suspect]
     Indication: BLOOD CHOLESTEROL INCREASED
     Route: 048
     Dates: start: 20070601
  2. BLOOD PRESSURE [Concomitant]

REACTIONS (3)
  - DEPRESSED MOOD [None]
  - DEPRESSION [None]
  - FLUID RETENTION [None]
